FAERS Safety Report 23905777 (Version 1)
Quarter: 2024Q2

REPORT INFORMATION
  Report Type: Spontaneous
  Country: DE (occurrence: DE)
  Receive Date: 20240527
  Receipt Date: 20240527
  Transmission Date: 20240716
  Serious: Yes (Hospitalization, Other)
  Sender: FDA-Public Use
  Company Number: DE-GLAXOSMITHKLINE-DE2024GSK065252

PATIENT

DRUGS (8)
  1. LAMOTRIGINE [Suspect]
     Active Substance: LAMOTRIGINE
     Indication: Bipolar disorder
     Dosage: FIVE AND A HALF WEEKS
     Dates: start: 20220219, end: 20220330
  2. COCAINE [Concomitant]
     Active Substance: COCAINE
     Indication: Product used for unknown indication
     Dosage: OCCASIONALY
  3. CANNABIS SATIVA SUBSP. INDICA TOP [Concomitant]
     Active Substance: CANNABIS SATIVA SUBSP. INDICA TOP
     Indication: Product used for unknown indication
     Dosage: OCCASIONALY
  4. PROMETHAZINE [Concomitant]
     Active Substance: PROMETHAZINE HYDROCHLORIDE
     Indication: Product used for unknown indication
     Dosage: UNK
     Dates: start: 20220312
  5. METAMIZOLE [Concomitant]
     Active Substance: METAMIZOLE
     Indication: Product used for unknown indication
     Dosage: UNK
  6. IBUPROFEN [Concomitant]
     Active Substance: IBUPROFEN
     Indication: Product used for unknown indication
     Dosage: UNK
  7. AMPHO-MORONAL [Concomitant]
     Active Substance: AMPHOTERICIN B
     Indication: Product used for unknown indication
     Dosage: UNK
  8. DULOXETINE [Concomitant]
     Active Substance: DULOXETINE
     Indication: Depression
     Dosage: UNK

REACTIONS (34)
  - Drug reaction with eosinophilia and systemic symptoms [Recovering/Resolving]
  - Pyrexia [Recovering/Resolving]
  - Pharyngitis [Recovering/Resolving]
  - Lymphadenopathy [Recovering/Resolving]
  - Rash [Recovering/Resolving]
  - Liver disorder [Recovering/Resolving]
  - Oropharyngeal pain [Recovering/Resolving]
  - Rash pruritic [Not Recovered/Not Resolved]
  - Abdominal pain upper [Recovering/Resolving]
  - Vomiting [Unknown]
  - Weight decreased [Recovered/Resolved]
  - Dysuria [Unknown]
  - Vaginal infection [Unknown]
  - Transaminases increased [Recovered/Resolved]
  - Tachycardia [Unknown]
  - Tongue coated [Unknown]
  - Aphthous ulcer [Unknown]
  - Eosinophilia [Recovering/Resolving]
  - Lymphocytosis [Recovering/Resolving]
  - Hepatosplenomegaly [Recovering/Resolving]
  - Ascites [Unknown]
  - Neutropenia [Recovering/Resolving]
  - Cough [Unknown]
  - Dyspnoea [Unknown]
  - Anamnestic reaction [Unknown]
  - Oedema [Recovering/Resolving]
  - Swelling [Recovering/Resolving]
  - Coagulopathy [Recovered/Resolved]
  - Pleural effusion [Unknown]
  - Thrombocytopenia [Unknown]
  - Hepatic failure [Recovering/Resolving]
  - Inflammation [Recovering/Resolving]
  - Hepatitis acute [Recovering/Resolving]
  - Condition aggravated [Recovering/Resolving]
